FAERS Safety Report 11457856 (Version 1)
Quarter: 2015Q3

REPORT INFORMATION
  Report Type: Spontaneous
  Country: US (occurrence: None)
  Receive Date: 20150903
  Receipt Date: 20150903
  Transmission Date: 20151125
  Serious: No
  Sender: FDA-Public Use
  Company Number: None

PATIENT
  Age: 56 Year
  Sex: Male
  Weight: 151.96 kg

DRUGS (8)
  1. LOSARTAN. [Suspect]
     Active Substance: LOSARTAN
     Indication: HYPERTENSION
     Dosage: 1 PILL PER DAY IN THE AM
     Route: 048
     Dates: start: 20150817, end: 20150901
  2. GLUCOSAMINE CONDROITIN [Concomitant]
  3. AMLODIPINE BESYLATE. [Concomitant]
     Active Substance: AMLODIPINE BESYLATE
  4. PRESSORVISION AREDS [Concomitant]
  5. CENTRUM SILVER [Concomitant]
     Active Substance: VITAMINS
  6. SAME (S-ADENOSYL L-MTHIONINE) [Concomitant]
  7. PROVIGIL [Concomitant]
     Active Substance: MODAFINIL
  8. METOPROLOL TARTRATE. [Concomitant]
     Active Substance: METOPROLOL TARTRATE

REACTIONS (1)
  - Tinnitus [None]

NARRATIVE: CASE EVENT DATE: 20150817
